FAERS Safety Report 12522007 (Version 2)
Quarter: 2016Q3

REPORT INFORMATION
  Report Type: Spontaneous
  Country: BR (occurrence: BR)
  Receive Date: 20160701
  Receipt Date: 20160819
  Transmission Date: 20161109
  Serious: Yes (Hospitalization, Other)
  Sender: FDA-Public Use
  Company Number: BR-BAYER-2016-088429

PATIENT
  Age: 40 Year
  Sex: Female
  Weight: 67 kg

DRUGS (2)
  1. AZELAN [Suspect]
     Active Substance: AZELAIC ACID
     Indication: SKIN DISCOLOURATION
     Dosage: UNK UNK, HS
     Route: 061
     Dates: start: 201509, end: 2015
  2. AZELAN [Suspect]
     Active Substance: AZELAIC ACID
     Indication: SKIN DISCOLOURATION
     Dosage: UNK
     Route: 061
     Dates: start: 20160504, end: 20160504

REACTIONS (5)
  - Maternal exposure during pregnancy [None]
  - Erythema [Not Recovered/Not Resolved]
  - Urinary tract infection [None]
  - Burning sensation [Not Recovered/Not Resolved]
  - Stillbirth [None]

NARRATIVE: CASE EVENT DATE: 201509
